FAERS Safety Report 7738060-2 (Version None)
Quarter: 2011Q3

REPORT INFORMATION
  Report Type: 
  Country: None (occurrence: None)
  Receive Date: 20110908
  Receipt Date: 20110831
  Transmission Date: 20111222
  Serious: Yes (Hospitalization, Other)
  Sender: FDA-Public Use
  Company Number: US-ABBOTT-11P-163-0850909-00

PATIENT
  Age: 22 Year
  Sex: Female

DRUGS (6)
  1. ADDERALL ER [Concomitant]
     Indication: ATTENTION DEFICIT/HYPERACTIVITY DISORDER
  2. LOSEASONIQUE [Concomitant]
     Indication: CONTRACEPTION
  3. HUMIRA [Suspect]
     Indication: CROHN'S DISEASE
     Dates: start: 20091001, end: 20110601
  4. ATIVAN [Concomitant]
     Indication: PRODUCT USED FOR UNKNOWN INDICATION
     Dosage: 1/2 TO 1 MG PRN
  5. METHOTREXATE [Concomitant]
     Indication: CROHN'S DISEASE
     Dates: start: 20110715, end: 20110801
  6. HUMIRA [Suspect]
     Dates: start: 20110101

REACTIONS (4)
  - FUNGAL INFECTION [None]
  - ANAL STENOSIS [None]
  - PNEUMONIA [None]
  - LUNG NEOPLASM [None]
